FAERS Safety Report 7934245-0 (Version None)
Quarter: 2011Q4

REPORT INFORMATION
  Report Type: 
  Country: None (occurrence: None)
  Receive Date: 20111122
  Receipt Date: 20111115
  Transmission Date: 20120403
  Serious: Yes (Other)
  Sender: FDA-Public Use
  Company Number: PHHY2011DK099856

PATIENT
  Sex: Male

DRUGS (3)
  1. RITALIN TAB [Suspect]
     Indication: ATTENTION DEFICIT/HYPERACTIVITY DISORDER
     Dosage: UNK UKN, UNK
     Dates: start: 20091001, end: 20100101
  2. LAMOTRIGINE [Concomitant]
     Dosage: 225 MG, QD
  3. KEPPRA [Concomitant]
     Dosage: 350 MG, BID

REACTIONS (1)
  - EPILEPSY [None]
